FAERS Safety Report 4901301-0 (Version None)
Quarter: 2006Q1

REPORT INFORMATION
  Report Type: 
  Country: None (occurrence: None)
  Receive Date: 20060202
  Receipt Date: 20060120
  Transmission Date: 20060701
  Serious: Yes (Other)
  Sender: FDA-Public Use
  Company Number: 2006011090

PATIENT
  Sex: Female

DRUGS (11)
  1. LIPITOR [Suspect]
     Indication: BLOOD CHOLESTEROL INCREASED
     Dosage: 20 MG (20 MG, 1 IN 1 D), ORAL
     Route: 048
     Dates: start: 19900101
  2. CELEBREX [Suspect]
     Indication: INFLAMMATION
     Dosage: ORAL
     Route: 048
     Dates: start: 19980101, end: 20010101
  3. LYRICA [Suspect]
     Indication: NEURALGIA
     Dosage: 50 MG (50 MG, 1 IN 1 D), ORAL
     Route: 048
     Dates: start: 20051208
  4. VIOXX [Suspect]
     Indication: INFLAMMATION
     Dosage: ORAL
     Route: 048
  5. IBUPROFEN [Suspect]
     Indication: INFLAMMATION
     Dosage: 1800 MG (600 MG, 3 IN 1 D), ORAL
     Route: 048
     Dates: start: 20050101
  6. ELAVIL [Suspect]
     Indication: NEURALGIA
     Dosage: ORAL
     Route: 048
  7. CHLOR-TRIMETON [Concomitant]
  8. ADVIL [Concomitant]
  9. ZANAFLEX [Concomitant]
  10. ALL OTHER THERAPEUTIC PRODUCTS (ALL OTHER THERAPEUTIC PRODUCTS) [Concomitant]
  11. ASPIRIN [Concomitant]

REACTIONS (14)
  - ARTHRITIS [None]
  - BACK DISORDER [None]
  - BACK INJURY [None]
  - BODY HEIGHT DECREASED [None]
  - CARPAL TUNNEL SYNDROME [None]
  - DRUG HYPERSENSITIVITY [None]
  - MENISCUS LESION [None]
  - MENSTRUATION IRREGULAR [None]
  - METRORRHAGIA [None]
  - MULTIPLE ALLERGIES [None]
  - NEURALGIA [None]
  - SOMNOLENCE [None]
  - TACHYCARDIA [None]
  - WEIGHT INCREASED [None]
